FAERS Safety Report 4296579-3 (Version None)
Quarter: 2004Q1

REPORT INFORMATION
  Report Type: 
  Country: None (occurrence: None)
  Receive Date: 20040217
  Receipt Date: 20031016
  Transmission Date: 20041129
  Serious: Yes (Life-Threatening, Hospitalization)
  Sender: FDA-Public Use
  Company Number: CH-GLAXOSMITHKLINE-B0312198A

PATIENT
  Age: 69 Year
  Sex: Female

DRUGS (8)
  1. DEROXAT [Suspect]
     Indication: DEPRESSION
     Dosage: 10MG PER DAY
     Route: 048
     Dates: start: 20021005, end: 20021008
  2. ZAROXOLYN [Suspect]
     Dosage: 5MG PER DAY
     Route: 048
     Dates: end: 20021008
  3. COSAAR PLUS [Suspect]
     Dosage: 62.5MG TWICE PER DAY
     Route: 048
     Dates: end: 20021008
  4. XANAX [Concomitant]
     Route: 048
  5. ASPIRIN [Concomitant]
     Dosage: 300MG PER DAY
     Route: 048
  6. THYROID TAB [Concomitant]
     Indication: HYPOTHYROIDISM
     Dosage: 1MG PER DAY
     Route: 048
  7. POTASSIUM EFFERVESCENT [Concomitant]
     Route: 048
  8. PRAVASTATIN SODIUM [Concomitant]
     Dosage: 20MG PER DAY

REACTIONS (9)
  - ABDOMINAL DISCOMFORT [None]
  - DISTURBANCE IN ATTENTION [None]
  - DRUG INTERACTION [None]
  - DRUG INTERACTION POTENTIATION [None]
  - GENERAL PHYSICAL HEALTH DETERIORATION [None]
  - HYPONATRAEMIA [None]
  - INAPPROPRIATE ANTIDIURETIC HORMONE SECRETION [None]
  - NAUSEA [None]
  - VOMITING [None]
